FAERS Safety Report 6212906-1 (Version None)
Quarter: 2009Q2

REPORT INFORMATION
  Report Type: 
  Country: None (occurrence: None)
  Receive Date: 20090603
  Receipt Date: 20090529
  Transmission Date: 20091009
  Serious: Yes (Life-Threatening)
  Sender: FDA-Public Use
  Company Number: HR-ABBOTT-09P-216-0576704-00

PATIENT

DRUGS (1)
  1. WARFARIN [Suspect]
     Indication: ATRIAL FIBRILLATION
     Dosage: NOT REPORTED

REACTIONS (2)
  - INTESTINAL GANGRENE [None]
  - SHOCK HAEMORRHAGIC [None]
